FAERS Safety Report 24200652 (Version 1)
Quarter: 2024Q3

REPORT INFORMATION
  Report Type: Spontaneous
  Country: US (occurrence: US)
  Receive Date: 20240812
  Receipt Date: 20240812
  Transmission Date: 20241017
  Serious: No
  Sender: ANI
  Company Number: US-ANIPHARMA-2024-US-034319

PATIENT
  Sex: Male

DRUGS (20)
  1. CORTICOTROPIN [Suspect]
     Active Substance: CORTICOTROPIN
     Indication: Rheumatoid arthritis
     Dosage: 40 UNITS  SUBUTANEOUS 2 TIMES A WEEK
     Route: 058
     Dates: start: 20240528
  2. FAMOTIDINE [Concomitant]
     Active Substance: FAMOTIDINE
  3. LATANOPROST [Concomitant]
     Active Substance: LATANOPROST
  4. TIMOLOL MALEATE [Concomitant]
     Active Substance: TIMOLOL MALEATE
  5. GABAPENTIN [Concomitant]
     Active Substance: GABAPENTIN
  6. BACLOFEN [Concomitant]
     Active Substance: BACLOFEN
  7. FERROUS SULFATE [Concomitant]
     Active Substance: FERROUS SULFATE
  8. ALENDRONATE SODIUM [Concomitant]
     Active Substance: ALENDRONATE SODIUM
  9. TAMSULOSIN HYDROCHLORIDE [Concomitant]
     Active Substance: TAMSULOSIN HYDROCHLORIDE
  10. VITAMIN D3 [Concomitant]
     Active Substance: CHOLECALCIFEROL
  11. CALCIUM CARBONATE [Concomitant]
     Active Substance: CALCIUM CARBONATE
  12. DOFETILIDE [Concomitant]
     Active Substance: DOFETILIDE
  13. RA STOOL SOFTENER [Concomitant]
  14. LISINOPRIL [Concomitant]
     Active Substance: LISINOPRIL
  15. PREDNISONE [Concomitant]
     Active Substance: PREDNISONE
  16. REMICADE [Concomitant]
     Active Substance: INFLIXIMAB
  17. METHOTREXATE SODIUM [Concomitant]
     Active Substance: METHOTREXATE SODIUM
  18. FOLIC ACID [Concomitant]
     Active Substance: FOLIC ACID
  19. B12-ACTIVE [Concomitant]
  20. ROSUVASTATIN CALCIUM [Concomitant]
     Active Substance: ROSUVASTATIN CALCIUM

REACTIONS (1)
  - Drug ineffective [Not Recovered/Not Resolved]
